FAERS Safety Report 8422731-9 (Version None)
Quarter: 2012Q2

REPORT INFORMATION
  Report Type: 
  Country: None (occurrence: None)
  Receive Date: 20120608
  Receipt Date: 20120601
  Transmission Date: 20120825
  Serious: Yes (Hospitalization, Other)
  Sender: FDA-Public Use
  Company Number: US-ROCHE-722762

PATIENT
  Sex: Female
  Weight: 121.67 kg

DRUGS (1)
  1. ACCUTANE [Suspect]
     Indication: ACNE CYSTIC
     Route: 065
     Dates: start: 19840801, end: 19841201

REACTIONS (13)
  - PSORIASIS [None]
  - IRRITABLE BOWEL SYNDROME [None]
  - HAEMORRHOIDS [None]
  - INFLAMMATORY BOWEL DISEASE [None]
  - DIVERTICULITIS [None]
  - ENTEROVESICAL FISTULA [None]
  - DIVERTICULUM INTESTINAL [None]
  - GASTROINTESTINAL INJURY [None]
  - COLITIS ULCERATIVE [None]
  - DEPRESSION [None]
  - ABSCESS INTESTINAL [None]
  - INTESTINAL OBSTRUCTION [None]
  - POLYP [None]
